FAERS Safety Report 5593218-6 (Version None)
Quarter: 2008Q1

REPORT INFORMATION
  Report Type: 
  Country: None (occurrence: None)
  Receive Date: 20080116
  Receipt Date: 20080107
  Transmission Date: 20080703
  Serious: Yes (Hospitalization, Other)
  Sender: FDA-Public Use
  Company Number: US-AMGEN-QUU243780

PATIENT
  Sex: Female

DRUGS (12)
  1. ENBREL [Suspect]
     Indication: RHEUMATOID ARTHRITIS
     Route: 058
     Dates: start: 19980101
  2. ARAVA [Concomitant]
     Dates: start: 20010101
  3. PREDNISONE TAB [Concomitant]
  4. ZOCOR [Concomitant]
  5. CALCIUM WITH VITAMIN D [Concomitant]
  6. VITAMIN B-COMPLEX FORTE [Concomitant]
  7. DHEA [Concomitant]
  8. IRON [Concomitant]
  9. MAGNESIUM OXIDE [Concomitant]
  10. ASCORBIC ACID [Concomitant]
  11. VITAMIN E [Concomitant]
  12. VITAMIN CAP [Concomitant]

REACTIONS (20)
  - ANKLE FRACTURE [None]
  - ANXIETY [None]
  - BARRETT'S OESOPHAGUS [None]
  - BRONCHITIS [None]
  - CHRONIC OBSTRUCTIVE PULMONARY DISEASE [None]
  - DEPRESSION [None]
  - FIBROMYALGIA [None]
  - GASTROOESOPHAGEAL REFLUX DISEASE [None]
  - HYPERTENSION [None]
  - INSOMNIA [None]
  - INTERVERTEBRAL DISC PROTRUSION [None]
  - KNEE ARTHROPLASTY [None]
  - NEPHROLITHIASIS [None]
  - OSTEOPOROSIS [None]
  - PNEUMONIA [None]
  - ROTATOR CUFF REPAIR [None]
  - SEPSIS [None]
  - TIBIA FRACTURE [None]
  - TYPE 2 DIABETES MELLITUS [None]
  - WRIST FRACTURE [None]
